FAERS Safety Report 6020353-0 (Version None)
Quarter: 2008Q4

REPORT INFORMATION
  Report Type: 
  Country: None (occurrence: None)
  Receive Date: 20081223
  Receipt Date: 20081223
  Transmission Date: 20090506
  Serious: No
  Sender: FDA-Public Use
  Company Number: None

PATIENT
  Age: 63 Year
  Sex: Male
  Weight: 162.2 kg

DRUGS (1)
  1. VARENICLINE [Suspect]
     Dosage: .5 MG EVERY DAY PO
     Route: 048
     Dates: start: 20080409, end: 20080519

REACTIONS (1)
  - DEPRESSION [None]
